FAERS Safety Report 12333296 (Version 1)
Quarter: 2016Q2

REPORT INFORMATION
  Report Type: Spontaneous
  Country: US (occurrence: US)
  Receive Date: 20160504
  Receipt Date: 20160504
  Transmission Date: 20160815
  Serious: No
  Sender: FDA-Public Use
  Company Number: US-ROCHE-1640917

PATIENT
  Sex: Female
  Weight: 93.98 kg

DRUGS (2)
  1. ESBRIET [Suspect]
     Active Substance: PIRFENIDONE
     Dosage: 2 CAPSULE TID.
     Route: 048
  2. ESBRIET [Suspect]
     Active Substance: PIRFENIDONE
     Indication: IDIOPATHIC PULMONARY FIBROSIS
     Dosage: 3 CAPS TID.
     Route: 048
     Dates: start: 20150623

REACTIONS (3)
  - Gastrooesophageal reflux disease [Unknown]
  - Throat irritation [Unknown]
  - Dyspepsia [Unknown]
